FAERS Safety Report 15330387 (Version 5)
Quarter: 2019Q2

REPORT INFORMATION
  Report Type: Report from Study
  Country: US (occurrence: US)
  Receive Date: 20180829
  Receipt Date: 20190527
  Transmission Date: 20190711
  Serious: Yes (Other)
  Sender: FDA-Public Use
  Company Number: US-SA-2018SA240777

PATIENT
  Age: 58 Year
  Sex: Male

DRUGS (3)
  1. SARILUMAB [Suspect]
     Active Substance: SARILUMAB
     Indication: RHEUMATOID ARTHRITIS
     Dosage: 200 MG, QOW
     Route: 058
     Dates: start: 20180703, end: 20190424
  2. PREDNISONE. [Concomitant]
     Active Substance: PREDNISONE
  3. SARILUMAB [Suspect]
     Active Substance: SARILUMAB
     Indication: ANAEMIA

REACTIONS (6)
  - Rheumatoid arthritis [Unknown]
  - Pain [Not Recovered/Not Resolved]
  - Rash [Recovered/Resolved]
  - Therapeutic response decreased [Unknown]
  - Product use in unapproved indication [Unknown]
  - Loss of personal independence in daily activities [Unknown]

NARRATIVE: CASE EVENT DATE: 20180821
